FAERS Safety Report 12089035 (Version 1)
Quarter: 2016Q1

REPORT INFORMATION
  Report Type: Spontaneous
  Country: FR (occurrence: FR)
  Receive Date: 20160218
  Receipt Date: 20160218
  Transmission Date: 20160526
  Serious: Yes (Hospitalization)
  Sender: FDA-Public Use
  Company Number: FR-ASTRAZENECA-2016SE15400

PATIENT
  Age: 20811 Day
  Sex: Male

DRUGS (9)
  1. ALIMTA [Suspect]
     Active Substance: PEMETREXED DISODIUM
     Indication: LUNG NEOPLASM MALIGNANT
     Route: 042
     Dates: end: 20160106
  2. SPECIAFOLDINE [Concomitant]
     Active Substance: FOLIC ACID
     Dates: start: 201504
  3. SPASFON [Concomitant]
     Active Substance: PHLOROGLUCINOL
     Indication: ABDOMINAL PAIN
     Dates: start: 20160113
  4. ARANESP [Concomitant]
     Active Substance: DARBEPOETIN ALFA
     Dates: start: 20151127
  5. NEULASTA [Concomitant]
     Active Substance: PEGFILGRASTIM
  6. INEXIUM [Suspect]
     Active Substance: ESOMEPRAZOLE
     Indication: OESOPHAGEAL PAIN
     Route: 048
     Dates: start: 201601, end: 201601
  7. ARANESP [Concomitant]
     Active Substance: DARBEPOETIN ALFA
     Dates: end: 20150901
  8. OXYCONTIN [Concomitant]
     Active Substance: OXYCODONE HYDROCHLORIDE
     Dates: start: 2015
  9. LASILIX [Concomitant]
     Active Substance: FUROSEMIDE
     Indication: OEDEMA PERIPHERAL
     Dates: start: 20151230

REACTIONS (7)
  - Haematuria [Unknown]
  - Rash maculo-papular [Recovered/Resolved]
  - Toxic skin eruption [Recovered/Resolved]
  - Bicytopenia [Recovering/Resolving]
  - Rash pruritic [Recovered/Resolved]
  - Acute kidney injury [Recovering/Resolving]
  - Hepatocellular injury [Recovered/Resolved]

NARRATIVE: CASE EVENT DATE: 20160107
